FAERS Safety Report 10541111 (Version 1)
Quarter: 2014Q4

REPORT INFORMATION
  Report Type: Spontaneous
  Country: US (occurrence: None)
  Receive Date: 20141023
  Receipt Date: 20141023
  Transmission Date: 20150529
  Serious: Yes (Other)
  Sender: FDA-Public Use
  Company Number: None

PATIENT
  Age: 69 Year
  Sex: Male
  Weight: 64.86 kg

DRUGS (5)
  1. PRAVASTATIN [Concomitant]
     Active Substance: PRAVASTATIN\PRAVASTATIN SODIUM
  2. XYLATAN [Concomitant]
  3. TIMOLOL [Concomitant]
     Active Substance: TIMOLOL
  4. SENIOR VITE [Concomitant]
  5. NYSTATIN. [Suspect]
     Active Substance: NYSTATIN
     Indication: PRODUCT USED FOR UNKNOWN INDICATION
     Dosage: 120?SWISH/SWALLOW ?4X DAILY?BY MOUTH
     Route: 048
     Dates: start: 20140924, end: 20140927

REACTIONS (4)
  - Discomfort [None]
  - Cough [None]
  - Choking [None]
  - Throat tightness [None]

NARRATIVE: CASE EVENT DATE: 20140927
